FAERS Safety Report 16896601 (Version 1)
Quarter: 2019Q4

REPORT INFORMATION
  Report Type: Other
  Country: AU (occurrence: AU)
  Receive Date: 20191008
  Receipt Date: 20191008
  Transmission Date: 20200122
  Serious: No
  Sender: FDA-Public Use
  Company Number: AU-TOLMAR, INC.-19AU000223

PATIENT
  Sex: Male

DRUGS (1)
  1. ELIGARD [Suspect]
     Active Substance: LEUPROLIDE ACETATE
     Indication: PROSTATE CANCER
     Dosage: 30 MG Q4 MONTHS
     Route: 058
     Dates: start: 20170909

REACTIONS (7)
  - Lacrimation increased [Unknown]
  - Temperature intolerance [Unknown]
  - Anxiety [Unknown]
  - Weight increased [Unknown]
  - Taste disorder [Unknown]
  - Depressed mood [Unknown]
  - Alopecia [Unknown]
